FAERS Safety Report 8605609-7 (Version None)
Quarter: 2012Q3

REPORT INFORMATION
  Report Type: 
  Country: None (occurrence: None)
  Receive Date: 20120807
  Receipt Date: 20120723
  Transmission Date: 20120928
  Serious: Yes (Other)
  Sender: FDA-Public Use
  Company Number: FK201202186

PATIENT
  Age: 33 Year
  Sex: Female

DRUGS (1)
  1. LEVETIRACETAM [Suspect]
     Indication: EPILEPSY
     Dosage: 500 MG, DAILY, ORAL
     Route: 048

REACTIONS (2)
  - ANGIOEDEMA [None]
  - RASH MACULO-PAPULAR [None]
